FAERS Safety Report 5873911-8 (Version None)
Quarter: 2008Q3

REPORT INFORMATION
  Report Type: 
  Country: None (occurrence: None)
  Receive Date: 20080903
  Receipt Date: 20080826
  Transmission Date: 20090109
  Serious: Yes (Other)
  Sender: FDA-Public Use
  Company Number: 08H-008-0314801-00

PATIENT
  Age: 68 Year
  Sex: Male

DRUGS (2)
  1. VANCOMYCIN HYDROCHLORIDE [Suspect]
     Indication: POSTOPERATIVE WOUND INFECTION
     Dosage: INTRAVENOUS
     Route: 042
  2. CIPROFLOXACIN [Concomitant]

REACTIONS (1)
  - LINEAR IGA DISEASE [None]
